FAERS Safety Report 17386906 (Version 1)
Quarter: 2020Q1

REPORT INFORMATION
  Report Type: Report from Study
  Country: DO (occurrence: DO)
  Receive Date: 20200206
  Receipt Date: 20200206
  Transmission Date: 20200409
  Serious: Yes (Other)
  Sender: FDA-Public Use
  Company Number: NVSC2020DO028114

PATIENT
  Age: 73 Year
  Sex: Female

DRUGS (1)
  1. VYMADA [Suspect]
     Active Substance: SACUBITRIL\VALSARTAN
     Indication: CARDIAC FAILURE
     Dosage: 1.5 DF (100MG ONE DOSE IN THE MORNING AND HALF DOSE AT NIGHT)
     Route: 065

REACTIONS (5)
  - Myocardial infarction [Unknown]
  - Wrong technique in product usage process [Unknown]
  - Retinal detachment [Unknown]
  - Visual impairment [Unknown]
  - Heart rate abnormal [Unknown]
